FAERS Safety Report 14918112 (Version 1)
Quarter: 2018Q2

REPORT INFORMATION
  Report Type: Spontaneous
  Country: US (occurrence: US)
  Receive Date: 20180502
  Receipt Date: 20180502
  Transmission Date: 20180711
  Serious: Yes (Life-Threatening, Hospitalization)
  Sender: FDA-Public Use
  Company Number: None

PATIENT
  Age: 63 Year
  Sex: Male
  Weight: 136.4 kg

DRUGS (15)
  1. LYRICA 150MG BID [Concomitant]
  2. CYCLOBENZAPRIL 10MG TID PRN MUSCLE PAIN [Concomitant]
  3. LISINOPRIL. [Suspect]
     Active Substance: LISINOPRIL
     Indication: HYPERTENSION
     Route: 048
  4. RANITIDINE 150MG BID [Concomitant]
  5. INSULIN ASPART SLIDING SCALE TID BEFORE MEALS [Concomitant]
  6. SUCRALFATE 1G BID [Concomitant]
  7. RISPERIDONE 2MG EVERY MORNING [Concomitant]
  8. RISPERIDONE 1MG AT BEDTIME [Concomitant]
  9. MIRTAZAPINE 15MG AT BEDTIME [Concomitant]
  10. INSULIN DETEMIR 35UNITS BID [Concomitant]
  11. GABAPENTIN 400MG BID [Concomitant]
  12. OMEPRAZOLE 40MG BID [Concomitant]
  13. DULOXETINE 60MG DAILY [Concomitant]
  14. TADALAFIL 20MG DAILY [Concomitant]
  15. FLUOXETINE 20MG DAILY [Concomitant]

REACTIONS (4)
  - Swollen tongue [None]
  - Dyspnoea [None]
  - Stridor [None]
  - Chest pain [None]

NARRATIVE: CASE EVENT DATE: 20180417
